FAERS Safety Report 15332297 (Version 2)
Quarter: 2018Q3

REPORT INFORMATION
  Report Type: Spontaneous
  Country: IL (occurrence: IL)
  Receive Date: 20180829
  Receipt Date: 20180912
  Transmission Date: 20181010
  Serious: Yes (Hospitalization, Other)
  Sender: FDA-Public Use
  Company Number: IL-ASTRAZENECA-2018SF07100

PATIENT
  Age: 69 Year
  Sex: Male

DRUGS (8)
  1. VERAPAMIL [Concomitant]
     Active Substance: VERAPAMIL HYDROCHLORIDE
  2. PRAVASTATIN. [Concomitant]
     Active Substance: PRAVASTATIN
  3. OMEPRAZOLE. [Concomitant]
     Active Substance: OMEPRAZOLE
  4. VALSARTAN. [Concomitant]
     Active Substance: VALSARTAN
  5. TAMSULOSIN [Concomitant]
     Active Substance: TAMSULOSIN
  6. GLIMEPIRIDE. [Concomitant]
     Active Substance: GLIMEPIRIDE
  7. EXENATIDE. [Suspect]
     Active Substance: EXENATIDE
     Route: 058
  8. ASPIRIN. [Concomitant]
     Active Substance: ASPIRIN

REACTIONS (6)
  - Subcutaneous haematoma [Unknown]
  - Muscle haemorrhage [Unknown]
  - Chest wall haematoma [Unknown]
  - Abdominal wall haematoma [Unknown]
  - Haemorrhage subcutaneous [Recovered/Resolved]
  - Haemoglobin decreased [Recovered/Resolved]
